FAERS Safety Report 9709425 (Version 1)
Quarter: 2013Q4

REPORT INFORMATION
  Report Type: Spontaneous
  Country: JP (occurrence: JP)
  Receive Date: 20131126
  Receipt Date: 20131126
  Transmission Date: 20140711
  Serious: Yes (Other)
  Sender: FDA-Public Use
  Company Number: JP-ROCHE-1305750

PATIENT
  Age: 79 Year
  Sex: Male

DRUGS (1)
  1. AVASTIN [Suspect]
     Indication: RETINAL VEIN OCCLUSION
     Dosage: DOSAGE IS UNCERTAIN.
     Route: 031

REACTIONS (3)
  - Retinal vein occlusion [Unknown]
  - Vitreous haemorrhage [Unknown]
  - Off label use [Unknown]
